FAERS Safety Report 6644023-0 (Version None)
Quarter: 2010Q1

REPORT INFORMATION
  Report Type: 
  Country: None (occurrence: None)
  Receive Date: 20100304
  Receipt Date: 20091117
  Transmission Date: 20100710
  Serious: Yes (Other)
  Sender: FDA-Public Use
  Company Number: 20090814CINRY1078

PATIENT
  Age: 31 Year
  Sex: Female
  Weight: 113.3993 kg

DRUGS (6)
  1. CINRYE (C1 ESTERASE INHIBITOR [HUMAN]) (500 UNIT, INJECTION FOR INFUSI [Suspect]
     Indication: HEREDITARY ANGIOEDEMA
     Dosage: (1000 UNIT, 2 IN 1 WK), INTRAVENOUS
     Route: 042
     Dates: start: 20090401, end: 20090901
  2. CINRYE (C1 ESTERASE INHIBITOR [HUMAN]) (500 UNIT, INJECTION FOR INFUSI [Suspect]
     Indication: PROPHYLAXIS
     Dosage: (1000 UNIT, 2 IN 1 WK), INTRAVENOUS
     Route: 042
     Dates: start: 20090401, end: 20090901
  3. DANAZOL [Concomitant]
  4. PRILOSEC [Concomitant]
  5. PROMETRIM (PROGESTERONE) [Concomitant]
  6. PRENATAL VITAMINS (PRENATAL VITAMINS) [Concomitant]

REACTIONS (4)
  - CONDITION AGGRAVATED [None]
  - DRUG EXPOSURE DURING PREGNANCY [None]
  - HEREDITARY ANGIOEDEMA [None]
  - PREGNANCY [None]
